FAERS Safety Report 5846816-6 (Version None)
Quarter: 2008Q3

REPORT INFORMATION
  Report Type: 
  Country: None (occurrence: None)
  Receive Date: 20080815
  Receipt Date: 20080806
  Transmission Date: 20090109
  Serious: Yes (Other)
  Sender: FDA-Public Use
  Company Number: ES-GENENTECH-265891

PATIENT

DRUGS (13)
  1. MABTHERA [Suspect]
     Indication: BURKITT'S LYMPHOMA
     Dosage: 375 MG/M2, Q3W
     Route: 042
  2. CYCLOPHOSPHAMIDE [Suspect]
     Indication: BURKITT'S LYMPHOMA
     Dosage: 200 MG/M2, UNK
     Route: 042
  3. PREDNISONE TAB [Suspect]
     Indication: BURKITT'S LYMPHOMA
     Dosage: 60 MG/M2, UNK
     Route: 040
  4. METHOTREXATE [Suspect]
     Indication: BURKITT'S LYMPHOMA
     Dosage: 1500 MG/M2, Q3W
     Route: 042
  5. VINCRISTINE [Suspect]
     Indication: BURKITT'S LYMPHOMA
     Dosage: 2 MG, UNK
     Route: 040
  6. DEXAMETHASONE TAB [Suspect]
     Indication: BURKITT'S LYMPHOMA
     Dosage: 10 MG/M2, UNK
     Route: 040
  7. CYTARABINE [Suspect]
     Indication: BURKITT'S LYMPHOMA
     Dosage: 150 MG/M2, UNK
     Route: 042
  8. IFOSFAMIDE [Suspect]
     Indication: BURKITT'S LYMPHOMA
     Dosage: 800 MG/M2, UNK
     Route: 042
  9. TENIPOSIDE [Suspect]
     Indication: BURKITT'S LYMPHOMA
     Dosage: 100 MG/M2, UNK
     Route: 042
  10. ETOPOSIDE [Suspect]
     Indication: BURKITT'S LYMPHOMA
     Dosage: 250 MG/M2, UNK
     Route: 042
  11. VINDESINE [Suspect]
     Indication: BURKITT'S LYMPHOMA
     Dosage: 3 MG/M2, UNK
     Route: 040
  12. DOXORUBICIN HCL [Suspect]
     Indication: BURKITT'S LYMPHOMA
     Dosage: 25 MG/M2, UNK
     Route: 042
  13. ALLOPURINOL [Concomitant]
     Indication: DRUG USE FOR UNKNOWN INDICATION

REACTIONS (1)
  - DRUG TOXICITY [None]
